FAERS Safety Report 11649130 (Version 1)
Quarter: 2015Q4

REPORT INFORMATION
  Report Type: Spontaneous
  Country: US (occurrence: US)
  Receive Date: 20151021
  Receipt Date: 20151021
  Transmission Date: 20160304
  Serious: Yes (Hospitalization, Other)
  Sender: FDA-Public Use
  Company Number: US-SHIRE-US201512725

PATIENT
  Age: 63 Year
  Sex: Male
  Weight: 96.15 kg

DRUGS (5)
  1. KLONOPIN [Concomitant]
     Active Substance: CLONAZEPAM
     Indication: ANXIETY
     Dosage: 0.5 MG, 2X/DAY:BID
     Route: 065
  2. LAMOTRIGINE. [Concomitant]
     Active Substance: LAMOTRIGINE
     Indication: PRODUCT USED FOR UNKNOWN INDICATION
     Dosage: UNK, UNKNOWN
     Route: 065
     Dates: end: 2015
  3. VYVANSE [Suspect]
     Active Substance: LISDEXAMFETAMINE DIMESYLATE
     Indication: ATTENTION DEFICIT/HYPERACTIVITY DISORDER
     Dosage: 70 MG, 1X/DAY:QD
     Route: 048
     Dates: start: 2015, end: 20151006
  4. OXYCODONE [Concomitant]
     Active Substance: OXYCODONE
     Indication: ARTHRITIS
     Dosage: 5 MG, 3X/DAY:TID
     Route: 065
     Dates: start: 2014
  5. ZOLPIDEM [Concomitant]
     Active Substance: ZOLPIDEM\ZOLPIDEM TARTRATE
     Indication: SLEEP DISORDER
     Dosage: 10 MG, 1X/DAY:QD
     Route: 048
     Dates: start: 2014

REACTIONS (21)
  - Panic attack [Recovering/Resolving]
  - Tooth infection [Recovered/Resolved]
  - Pain [Recovering/Resolving]
  - Osteoarthritis [Not Recovered/Not Resolved]
  - Scar [Not Recovered/Not Resolved]
  - Attention deficit/hyperactivity disorder [Recovering/Resolving]
  - Tooth loss [Recovered/Resolved]
  - Anxiety [Recovering/Resolving]
  - Depression [Recovering/Resolving]
  - Gastritis [Not Recovered/Not Resolved]
  - Increased appetite [Not Recovered/Not Resolved]
  - Poor quality sleep [Unknown]
  - Diverticulitis [Not Recovered/Not Resolved]
  - Psychotic disorder [Recovering/Resolving]
  - Decreased appetite [Recovered/Resolved]
  - Condition aggravated [Recovering/Resolving]
  - Dermatitis [Recovered/Resolved]
  - Feeding disorder [Recovering/Resolving]
  - Toothache [Not Recovered/Not Resolved]
  - Bruxism [Not Recovered/Not Resolved]
  - Abnormal loss of weight [Recovering/Resolving]

NARRATIVE: CASE EVENT DATE: 2015
